FAERS Safety Report 19822845 (Version 1)
Quarter: 2021Q3

REPORT INFORMATION
  Report Type: Report from Study
  Country: US (occurrence: US)
  Receive Date: 20210913
  Receipt Date: 20210913
  Transmission Date: 20211014
  Serious: Yes (Other)
  Sender: FDA-Public Use
  Company Number: US-CLOVIS ONCOLOGY-CLO-2021-000960

PATIENT
  Sex: Female

DRUGS (5)
  1. RUBRACA [Suspect]
     Active Substance: RUCAPARIB CAMSYLATE
     Dosage: 600 MILLIGRAM, BID
     Route: 048
     Dates: start: 20210612
  2. RUBRACA [Suspect]
     Active Substance: RUCAPARIB CAMSYLATE
     Dosage: 400 MILLIGRAM, BID
     Route: 048
     Dates: start: 20210805
  3. RUBRACA [Suspect]
     Active Substance: RUCAPARIB CAMSYLATE
     Dosage: 300 MG AM/600 MG PM
     Dates: start: 20210713
  4. RUBRACA [Suspect]
     Active Substance: RUCAPARIB CAMSYLATE
     Indication: OVARIAN CANCER
     Dosage: 600 MILLIGRAM, BID
     Route: 048
     Dates: start: 20190612
  5. RUBRACA [Suspect]
     Active Substance: RUCAPARIB CAMSYLATE
     Dosage: 300 MILLIGRAM, BID
     Route: 048
     Dates: start: 20210719

REACTIONS (14)
  - Feeling abnormal [Unknown]
  - Taste disorder [Recovering/Resolving]
  - Glomerular filtration rate decreased [Unknown]
  - Asthenia [Unknown]
  - Oral pain [Unknown]
  - Stomatitis [Unknown]
  - Nausea [Recovered/Resolved]
  - Tinnitus [Unknown]
  - Paraesthesia oral [Not Recovered/Not Resolved]
  - Fatigue [Recovering/Resolving]
  - Decreased appetite [Unknown]
  - Deafness [Unknown]
  - Product dose omission in error [Unknown]
  - Malaise [Unknown]

NARRATIVE: CASE EVENT DATE: 2021
